FAERS Safety Report 9221899 (Version 1)
Quarter: 2013Q2

REPORT INFORMATION
  Report Type: Spontaneous
  Country: FR (occurrence: None)
  Receive Date: 20130408
  Receipt Date: 20130408
  Transmission Date: 20140414
  Serious: Yes (Hospitalization)
  Sender: FDA-Public Use
  Company Number: SYM-2013-02240

PATIENT
  Age: 71 Year
  Sex: Male

DRUGS (3)
  1. FLAGYL [Suspect]
     Dosage: INTRAVENOUS (NOT OTHERWISE SPECIFIED)?
     Route: 042
     Dates: start: 20130307, end: 20130310
  2. ROCEPHINE [Suspect]
     Dosage: IV (NOT OTHERWISE SPECIFIED)?
     Route: 042
     Dates: start: 20130307, end: 20130310
  3. LEXOMIL (BROMAZERPAM) (BROMAZEPAM) [Concomitant]

REACTIONS (1)
  - Thrombocytopenia [None]
